FAERS Safety Report 8500301-1 (Version None)
Quarter: 2012Q3

REPORT INFORMATION
  Report Type: 
  Country: None (occurrence: None)
  Receive Date: 20120710
  Receipt Date: 20120705
  Transmission Date: 20120928
  Serious: Yes (Disabling)
  Sender: FDA-Public Use
  Company Number: PT-ABBOTT-12P-130-0938521-00

PATIENT
  Sex: Male
  Weight: 67 kg

DRUGS (1)
  1. HUMIRA [Suspect]
     Indication: RHEUMATOID ARTHRITIS
     Route: 058
     Dates: start: 20110531

REACTIONS (3)
  - BLISTER [None]
  - SKIN EXFOLIATION [None]
  - DRY SKIN [None]
